FAERS Safety Report 21131437 (Version 1)
Quarter: 2022Q3

REPORT INFORMATION
  Report Type: Spontaneous
  Country: US (occurrence: US)
  Receive Date: 20220726
  Receipt Date: 20220726
  Transmission Date: 20221027
  Serious: Yes (Hospitalization)
  Sender: FDA-Public Use
  Company Number: US-STRIDES ARCOLAB LIMITED-2021SP030621

PATIENT
  Age: 34 Year
  Sex: Male

DRUGS (2)
  1. AMANTADINE HYDROCHLORIDE [Suspect]
     Active Substance: AMANTADINE HYDROCHLORIDE
     Indication: Tardive dyskinesia
     Dosage: TITRATED TO A DAILY DOSAGE OF 300 MG DAILY
     Route: 065
  2. CLOZAPINE [Concomitant]
     Active Substance: CLOZAPINE
     Indication: Schizophrenia
     Dosage: CONTINUED TO TAKE CLOZAPINE 300 MG DAILY IN DIVIDED DOSES
     Route: 065

REACTIONS (1)
  - Drug ineffective for unapproved indication [Unknown]
